FAERS Safety Report 25120544 (Version 2)
Quarter: 2025Q2

REPORT INFORMATION
  Report Type: Report from Study
  Country: US (occurrence: US)
  Receive Date: 20250325
  Receipt Date: 20250630
  Transmission Date: 20250716
  Serious: Yes (Other)
  Sender: ABBVIE
  Company Number: US-ABBVIE-6186182

PATIENT
  Age: 65 Year
  Sex: Female

DRUGS (2)
  1. HUMIRA [Suspect]
     Active Substance: ADALIMUMAB
     Indication: Rheumatoid arthritis
     Route: 058
     Dates: start: 20231003
  2. HUMIRA [Suspect]
     Active Substance: ADALIMUMAB
     Indication: Osteoporosis

REACTIONS (8)
  - Surgery [Recovering/Resolving]
  - Nail operation [Recovering/Resolving]
  - Tendon disorder [Recovering/Resolving]
  - Skin abrasion [Unknown]
  - Neck surgery [Unknown]
  - Toe amputation [Recovering/Resolving]
  - Staphylococcal infection [Recovered/Resolved]
  - Rheumatoid arthritis [Unknown]

NARRATIVE: CASE EVENT DATE: 20240101
